FAERS Safety Report 8618588-3 (Version None)
Quarter: 2012Q3

REPORT INFORMATION
  Report Type: 
  Country: None (occurrence: None)
  Receive Date: 20120824
  Receipt Date: 20120822
  Transmission Date: 20120928
  Serious: No
  Sender: FDA-Public Use
  Company Number: US-PFIZER INC-2012206745

PATIENT
  Age: 53 Year
  Sex: Female

DRUGS (3)
  1. PROTONIX [Suspect]
     Dosage: 40 MG, 1X/DAY
     Route: 048
  2. CELEBREX [Suspect]
     Dosage: UNK
  3. NEURONTIN [Suspect]
     Dosage: 300 MG, 3X/DAY
     Route: 048

REACTIONS (2)
  - PAIN [None]
  - ACTIVITIES OF DAILY LIVING IMPAIRED [None]
